FAERS Safety Report 21268021 (Version 2)
Quarter: 2022Q3

REPORT INFORMATION
  Report Type: Spontaneous
  Country: JP (occurrence: JP)
  Receive Date: 20220829
  Receipt Date: 20220915
  Transmission Date: 20221026
  Serious: Yes (Other)
  Sender: FDA-Public Use
  Company Number: JP-AMGEN-JPNSP2022148080

PATIENT

DRUGS (1)
  1. AIMOVIG [Suspect]
     Active Substance: ERENUMAB-AOOE
     Indication: Migraine prophylaxis
     Dosage: 70 MILLIGRAM, Q4WK
     Route: 058
     Dates: start: 20220425

REACTIONS (1)
  - Carcinoembryonic antigen increased [Recovered/Resolved]

NARRATIVE: CASE EVENT DATE: 20220824
